FAERS Safety Report 8085706 (Version 2)
Quarter: 2017Q1

REPORT INFORMATION
  Report Type: Spontaneous
  Country: SE (occurrence: SE)
  Receive Date: 20110811
  Receipt Date: 20170324
  Transmission Date: 20170429
  Serious: Yes (Hospitalization)
  Sender: FDA-Public Use
  Company Number: SE-PFIZER INC-2011182041

PATIENT
  Age: 14 Year
  Sex: Female

DRUGS (5)
  1. CYTOTEC [Suspect]
     Active Substance: MISOPROSTOL
     Indication: ABORTION INDUCED
     Dosage: 800 UG, 1X/DAY
     Route: 048
     Dates: start: 20110304, end: 20110304
  2. MIFEGYNE [Suspect]
     Active Substance: MIFEPRISTONE
     Indication: ABORTION INDUCED
     Dosage: 200 MG, 1X/DAY
     Route: 048
     Dates: start: 20110302, end: 20110302
  3. NIFEREX [Concomitant]
     Active Substance: IRON\POLYSACCHARIDES
     Dosage: UNK
  4. CITALOPRAM [Concomitant]
     Active Substance: CITALOPRAM HYDROBROMIDE
     Dosage: UNK
  5. CITODON [Concomitant]
     Active Substance: ACETAMINOPHEN\CODEINE PHOSPHATE
     Dosage: UNK

REACTIONS (3)
  - Drug ineffective for unapproved indication [Recovered/Resolved]
  - Circulatory collapse [Recovered/Resolved]
  - Toxic shock syndrome [Recovered/Resolved]

NARRATIVE: CASE EVENT DATE: 20110308
